FAERS Safety Report 13579748 (Version 2)
Quarter: 2017Q3

REPORT INFORMATION
  Report Type: Spontaneous
  Country: US (occurrence: US)
  Receive Date: 20170525
  Receipt Date: 20170927
  Transmission Date: 20171127
  Serious: Yes (Hospitalization, Other)
  Sender: FDA-Public Use
  Company Number: US-JNJFOC-20170522705

PATIENT
  Age: 55 Year
  Sex: Female

DRUGS (11)
  1. INVOKANA [Suspect]
     Active Substance: CANAGLIFLOZIN
     Indication: DIABETES MELLITUS MANAGEMENT
     Route: 048
     Dates: start: 20150305, end: 2015
  2. INVOKANA [Suspect]
     Active Substance: CANAGLIFLOZIN
     Indication: DIABETES MELLITUS MANAGEMENT
     Route: 048
     Dates: start: 20150409, end: 20150518
  3. ATORVASTATIN [Concomitant]
     Active Substance: ATORVASTATIN
     Indication: CARDIAC DISORDER
     Route: 065
  4. SOTALOL. [Concomitant]
     Active Substance: SOTALOL
     Indication: CARDIAC DISORDER
     Route: 065
  5. LOSARTAN. [Concomitant]
     Active Substance: LOSARTAN
     Indication: CARDIAC DISORDER
     Route: 065
  6. DILTIAZEM. [Concomitant]
     Active Substance: DILTIAZEM
     Indication: ATRIAL FIBRILLATION
     Route: 065
  7. METFORMIN [Suspect]
     Active Substance: METFORMIN HYDROCHLORIDE
     Indication: DIABETES MELLITUS
     Route: 048
     Dates: end: 201505
  8. TRULICITY [Concomitant]
     Active Substance: DULAGLUTIDE
     Indication: DIABETES MELLITUS
     Route: 065
  9. JANUVIA [Concomitant]
     Active Substance: SITAGLIPTIN PHOSPHATE
     Indication: DIABETES MELLITUS
     Route: 065
  10. METOPROLOL. [Concomitant]
     Active Substance: METOPROLOL
     Indication: CARDIAC DISORDER
     Route: 065
  11. INVOKANA [Suspect]
     Active Substance: CANAGLIFLOZIN
     Indication: DIABETES MELLITUS MANAGEMENT
     Route: 048
     Dates: start: 201505, end: 201505

REACTIONS (4)
  - Diarrhoea [Recovered/Resolved]
  - Diabetic ketoacidosis [Unknown]
  - Vomiting [Recovered/Resolved]
  - Acute kidney injury [Recovering/Resolving]

NARRATIVE: CASE EVENT DATE: 20150511
